FAERS Safety Report 8469496-2 (Version None)
Quarter: 2012Q2

REPORT INFORMATION
  Report Type: 
  Country: None (occurrence: None)
  Receive Date: 20120626
  Receipt Date: 20120618
  Transmission Date: 20120825
  Serious: Yes (Hospitalization)
  Sender: FDA-Public Use
  Company Number: JP-BAXTER-2012BAX008368

PATIENT
  Age: 4 Year
  Sex: Female

DRUGS (9)
  1. PREDNISOLONE SODIUM SUCCINATE INJ [Suspect]
  2. VINCRISTINE [Suspect]
  3. INFLUENZA HA VACCINE [Concomitant]
  4. CYTARABINE [Suspect]
  5. MERCAPTOPURINE [Suspect]
  6. METHOTREXATE [Suspect]
  7. ELSPAR [Suspect]
  8. PIRARUBICIN [Suspect]
  9. CYCLOPHOSPHAMIDE [Suspect]

REACTIONS (2)
  - PNEUMONIA BACTERIAL [None]
  - BLOOD IMMUNOGLOBULIN G DECREASED [None]
